FAERS Safety Report 21594363 (Version 2)
Quarter: 2023Q1

REPORT INFORMATION
  Report Type: Spontaneous
  Country: US (occurrence: None)
  Receive Date: 20221115
  Receipt Date: 20230321
  Transmission Date: 20230417
  Serious: No
  Sender: FDA-Public Use
  Company Number: US-ROCHE-3165640

PATIENT
  Sex: Male

DRUGS (2)
  1. VABYSMO [Suspect]
     Active Substance: FARICIMAB-SVOA
     Indication: Dry age-related macular degeneration
     Route: 031
  2. LUCENTIS [Suspect]
     Active Substance: RANIBIZUMAB
     Indication: Dry age-related macular degeneration
     Route: 031

REACTIONS (3)
  - Eye pain [Not Recovered/Not Resolved]
  - Intentional product use issue [Unknown]
  - Visual impairment [Unknown]

NARRATIVE: CASE EVENT DATE: 20220818
